FAERS Safety Report 13115853 (Version 2)
Quarter: 2017Q1

REPORT INFORMATION
  Report Type: Report from Study
  Country: US (occurrence: US)
  Receive Date: 20170115
  Receipt Date: 20170201
  Transmission Date: 20170428
  Serious: Yes (Other)
  Sender: FDA-Public Use
  Company Number: US-MALLINCKRODT-T201606315

PATIENT
  Age: 67 Year
  Sex: Male

DRUGS (1)
  1. REPOSITORY CORTICOTROPIN INJECTION [Suspect]
     Active Substance: CORTICOTROPIN
     Indication: SARCOIDOSIS
     Dosage: 40 UNITS / 0.5 ML, 2 TIMES PER WEEK
     Route: 058
     Dates: start: 20161103

REACTIONS (7)
  - Condition aggravated [Not Recovered/Not Resolved]
  - Pneumonia [Recovered/Resolved]
  - Bronchitis [Not Recovered/Not Resolved]
  - Fluid retention [Not Recovered/Not Resolved]
  - Drug ineffective [Not Recovered/Not Resolved]
  - Dyspnoea [Not Recovered/Not Resolved]
  - Injection site pain [Not Recovered/Not Resolved]

NARRATIVE: CASE EVENT DATE: 201611
